FAERS Safety Report 6427568-8 (Version None)
Quarter: 2009Q4

REPORT INFORMATION
  Report Type: 
  Country: None (occurrence: None)
  Receive Date: 20091104
  Receipt Date: 20091020
  Transmission Date: 20100525
  Serious: Yes (Hospitalization)
  Sender: FDA-Public Use
  Company Number: CA-GENENTECH-286928

PATIENT
  Sex: Female
  Weight: 43 kg

DRUGS (4)
  1. OMALIZUMAB [Suspect]
     Indication: ASTHMA
     Dosage: 150 MG, UNK
     Route: 058
     Dates: start: 20060201
  2. OMALIZUMAB [Suspect]
     Dosage: 150 MG, Q4W
     Route: 058
     Dates: start: 20060320
  3. OMALIZUMAB [Suspect]
     Dosage: 150 MG, 1/MONTH
     Route: 060
     Dates: start: 20090706
  4. UNSPECIFIED MEDICATION [Concomitant]
     Indication: OBSTRUCTIVE AIRWAYS DISORDER

REACTIONS (1)
  - ASTHMA [None]
